FAERS Safety Report 19821510 (Version 1)
Quarter: 2021Q3

REPORT INFORMATION
  Report Type: Spontaneous
  Country: US (occurrence: US)
  Receive Date: 20210913
  Receipt Date: 20210913
  Transmission Date: 20211014
  Serious: Yes (Hospitalization)
  Sender: FDA-Public Use
  Company Number: US-MYLANLABS-2021M1060383

PATIENT
  Age: 35 Year
  Sex: Female

DRUGS (2)
  1. TRIAMCINOLONE [Suspect]
     Active Substance: TRIAMCINOLONE
     Dosage: 4 MILLIGRAM (APPROXIMATELY EVERY 3?4 MONTHS)
  2. TRIAMCINOLONE [Suspect]
     Active Substance: TRIAMCINOLONE
     Indication: MACULOPATHY
     Dosage: 4 MILLIGRAM

REACTIONS (2)
  - Off label use [Unknown]
  - Cataract [Recovered/Resolved]
